FAERS Safety Report 12990611 (Version 1)
Quarter: 2016Q4

REPORT INFORMATION
  Report Type: Spontaneous
  Country: US (occurrence: US)
  Receive Date: 20161201
  Receipt Date: 20161201
  Transmission Date: 20170207
  Serious: No
  Sender: FDA-Public Use
  Company Number: None

PATIENT

DRUGS (2)
  1. POTASSIUM CHLORIDE 10MEQ PER 50ML [Suspect]
     Active Substance: POTASSIUM CHLORIDE
     Route: 042
  2. GENTAMICIN SULFATE. [Suspect]
     Active Substance: GENTAMICIN SULFATE
     Route: 042

REACTIONS (3)
  - Product packaging confusion [None]
  - Product label confusion [None]
  - Product name confusion [None]
